FAERS Safety Report 6144916-7 (Version None)
Quarter: 2009Q2

REPORT INFORMATION
  Report Type: 
  Country: None (occurrence: None)
  Receive Date: 20090406
  Receipt Date: 20090325
  Transmission Date: 20091009
  Serious: Yes (Hospitalization)
  Sender: FDA-Public Use
  Company Number: US-MERCK-0610USA03508

PATIENT
  Age: 48 Year
  Sex: Female

DRUGS (8)
  1. FOSAMAX [Suspect]
     Indication: OSTEOPOROSIS
     Route: 048
     Dates: start: 20021223, end: 20040701
  2. FOSAMAX [Suspect]
     Route: 048
  3. FOSAMAX [Suspect]
     Route: 048
     Dates: start: 20040701, end: 20070307
  4. TRILEPTAL [Concomitant]
     Indication: AFFECTIVE DISORDER
     Route: 065
     Dates: start: 19980101
  5. EFFEXOR [Concomitant]
     Indication: DEPRESSION
     Route: 065
     Dates: start: 19980101
  6. ATIVAN [Concomitant]
     Indication: ANXIETY
     Route: 065
     Dates: start: 19980101
  7. BUSPAR [Concomitant]
     Indication: ANXIETY
     Route: 065
     Dates: start: 19980101
  8. ACTONEL [Suspect]
     Indication: OSTEOPOROSIS
     Route: 048
     Dates: start: 20020101, end: 20021229

REACTIONS (6)
  - BIPOLAR DISORDER [None]
  - MAJOR DEPRESSION [None]
  - OVERDOSE [None]
  - SUICIDE ATTEMPT [None]
  - TOOTH DISORDER [None]
  - UNDERDOSE [None]
